FAERS Safety Report 8538041-5 (Version None)
Quarter: 2012Q3

REPORT INFORMATION
  Report Type: 
  Country: None (occurrence: None)
  Receive Date: 20120725
  Receipt Date: 20120720
  Transmission Date: 20120928
  Serious: Yes (Hospitalization)
  Sender: FDA-Public Use
  Company Number: TN-PFIZER INC-2012165904

PATIENT
  Age: 66 Year
  Sex: Female

DRUGS (6)
  1. ATACAND [Concomitant]
  2. NICARDIPINE HCL [Concomitant]
  3. LYRICA [Suspect]
     Indication: NEURALGIA
     Dosage: 150 MG, 2X/DAY
     Route: 048
     Dates: start: 20120613, end: 20120620
  4. NEBIVOLOL HCL [Concomitant]
  5. PREDNISOLONE [Concomitant]
     Indication: VASCULITIS
     Dosage: 40 MG, 1X/DAY
     Route: 048
  6. LYRICA [Suspect]
     Indication: VASCULITIS
     Dosage: 75 MG, 2X/DAY
     Route: 048
     Dates: start: 20120606, end: 20120612

REACTIONS (7)
  - OEDEMA PERIPHERAL [None]
  - EYELID OEDEMA [None]
  - TONGUE OEDEMA [None]
  - OEDEMA MOUTH [None]
  - FACE OEDEMA [None]
  - LARYNGEAL OEDEMA [None]
  - LOCALISED OEDEMA [None]
